FAERS Safety Report 8989093 (Version 1)
Quarter: 2012Q4

REPORT INFORMATION
  Report Type: Spontaneous
  Country: IN (occurrence: None)
  Receive Date: 20121224
  Receipt Date: 20121224
  Transmission Date: 20130627
  Serious: Yes (Life-Threatening, Hospitalization, Congenital Anomaly, Other)
  Sender: FDA-Public Use
  Company Number: None

PATIENT
  Age: 42 Year
  Sex: Male
  Weight: 108 kg

DRUGS (2)
  1. HYDROCORTISONE SODIUM SUCCINATE [Suspect]
     Dosage: 100MG TWICE IV
     Route: 042
     Dates: start: 20111029, end: 20121220
  2. CEFUROXIME SODIUM [Suspect]
     Dosage: 750MG TWICE IV
     Route: 042
     Dates: start: 20111229, end: 20121220

REACTIONS (2)
  - Skin burning sensation [None]
  - Renal failure [None]
